FAERS Safety Report 6220964-3 (Version None)
Quarter: 2009Q2

REPORT INFORMATION
  Report Type: 
  Country: None (occurrence: None)
  Receive Date: 20090610
  Receipt Date: 20090601
  Transmission Date: 20091009
  Serious: Yes (Other)
  Sender: FDA-Public Use
  Company Number: GB-NOVOPROD-281386

PATIENT
  Age: 66 Year
  Sex: Male
  Weight: 91.3 kg

DRUGS (15)
  1. LEVEMIR [Suspect]
     Indication: TYPE 2 DIABETES MELLITUS
     Dosage: 60 IU, QD
     Route: 058
     Dates: start: 20081006, end: 20081009
  2. LEVEMIR [Suspect]
     Dosage: 66 IU, QD
     Route: 058
     Dates: start: 20081010, end: 20081016
  3. LEVEMIR [Suspect]
     Dosage: 74 IU, QD
     Route: 058
     Dates: start: 20081017
  4. LEVEMIR [Suspect]
     Dosage: 78 IU, QD
     Route: 058
     Dates: end: 20081024
  5. NOVOLOG [Suspect]
     Indication: TYPE 2 DIABETES MELLITUS
     Dosage: 6 IU, TID
     Route: 058
     Dates: start: 20081006, end: 20081009
  6. NOVOLOG [Suspect]
     Dosage: 10 IU, TID
     Route: 058
     Dates: start: 20081010, end: 20081016
  7. NOVOLOG [Suspect]
     Dosage: 16 IU, TID
     Route: 058
     Dates: start: 20081017
  8. NOVOLOG [Suspect]
     Dosage: 18 IU, TID
     Route: 058
     Dates: end: 20081024
  9. HUMAN MIXTARD 30 HM(GE) [Suspect]
     Indication: TYPE 2 DIABETES MELLITUS
     Dosage: 26+70  IU, QD
     Route: 058
     Dates: end: 20081006
  10. HUMAN MIXTARD 30 HM(GE) [Suspect]
     Dosage: 26+70  IU, QD
     Dates: start: 20081024
  11. METFORMIN [Concomitant]
     Dosage: 2 G, UNK
     Route: 048
     Dates: start: 19921110
  12. TRAMADOL HCL [Concomitant]
     Dosage: 200 MG, QD
     Route: 048
     Dates: start: 20040506
  13. OLMESARTAN [Concomitant]
     Dosage: 40 MG, QD
     Route: 048
     Dates: start: 20051213
  14. SIMVASTATIN [Concomitant]
     Dosage: 20 MG, QD
     Route: 048
     Dates: start: 20060322
  15. DILTIAZEM [Concomitant]
     Dosage: 120 MG, QD
     Route: 048
     Dates: start: 20081104

REACTIONS (3)
  - FATIGUE [None]
  - HYPERGLYCAEMIA [None]
  - ROAD TRAFFIC ACCIDENT [None]
